FAERS Safety Report 6557331-9 (Version None)
Quarter: 2010Q1

REPORT INFORMATION
  Report Type: 
  Country: None (occurrence: None)
  Receive Date: 20100129
  Receipt Date: 20100121
  Transmission Date: 20100710
  Serious: Yes (Death, Other)
  Sender: FDA-Public Use
  Company Number: US-TEVA-216725USA

PATIENT
  Sex: Female

DRUGS (7)
  1. CLOZAPINE [Suspect]
     Route: 048
     Dates: end: 20091119
  2. CLOZAPINE [Suspect]
     Route: 048
     Dates: end: 20091119
  3. VALPROATE SODIUM [Concomitant]
  4. SERTRALINE HCL [Concomitant]
  5. LISINOPRIL [Concomitant]
  6. DOCUSATE SODIUM [Concomitant]
  7. COSOPT [Concomitant]

REACTIONS (2)
  - CARDIOPULMONARY FAILURE [None]
  - HAEMATEMESIS [None]
